FAERS Safety Report 16142556 (Version 34)
Quarter: 2022Q2

REPORT INFORMATION
  Report Type: Report from Study
  Country: GB (occurrence: GB)
  Receive Date: 20190401
  Receipt Date: 20220617
  Transmission Date: 20220720
  Serious: Yes (Death, Hospitalization, Other)
  Sender: FDA-Public Use
  Company Number: GB-EMA-DD-20181127-N9C8J7-154750

PATIENT
  Age: 58 Year
  Sex: Female

DRUGS (185)
  1. TRASTUZUMAB [Suspect]
     Active Substance: TRASTUZUMAB
     Indication: HER2 positive breast cancer
     Dosage: 172 MILLIGRAM, Q3W/DOSE REDUCED/01-DEC-2015
     Route: 042
     Dates: end: 20151221
  2. TRASTUZUMAB [Suspect]
     Active Substance: TRASTUZUMAB
     Indication: Breast cancer metastatic
     Dosage: 300 MILLIGRAM, Q3W
     Route: 042
  3. TRASTUZUMAB [Suspect]
     Active Substance: TRASTUZUMAB
     Dosage: 350 MILLIGRAM, LOADING DOSE/01-JUN-2015
     Route: 042
     Dates: start: 20150601, end: 20150601
  4. TRASTUZUMAB [Suspect]
     Active Substance: TRASTUZUMAB
     Dosage: 140 MILLIGRAM, Q3W/01-DEC-2015
     Route: 042
     Dates: end: 20160215
  5. TRASTUZUMAB [Suspect]
     Active Substance: TRASTUZUMAB
     Dosage: 1 DF, Q3W,DOSE REDUCED
     Route: 042
  6. TRASTUZUMAB [Suspect]
     Active Substance: TRASTUZUMAB
     Dosage: UNK, Q3W, DOSE REDUCED
     Route: 042
  7. TRASTUZUMAB [Suspect]
     Active Substance: TRASTUZUMAB
     Dosage: 300 MILLIGRAM, Q3W (DOSE MODIFIED)
     Route: 042
  8. TRASTUZUMAB [Suspect]
     Active Substance: TRASTUZUMAB
     Dosage: UNK UNK, Q3W
     Route: 042
  9. TRASTUZUMAB [Suspect]
     Active Substance: TRASTUZUMAB
     Dosage: 300 MILLIGRAM, Q3W
     Route: 042
  10. TRASTUZUMAB [Suspect]
     Active Substance: TRASTUZUMAB
     Dosage: 172 MILLIGRAM, Q3W/01-DEC-2015
     Route: 042
     Dates: end: 20151221
  11. TRASTUZUMAB [Suspect]
     Active Substance: TRASTUZUMAB
     Dosage: 140 MILLIGRAM, Q3W/15-FEB-2016
     Route: 042
     Dates: end: 20160215
  12. TRASTUZUMAB [Suspect]
     Active Substance: TRASTUZUMAB
     Dosage: 140 MILLIGRAM, Q3W/01-DEC-2015
     Route: 042
     Dates: end: 20160215
  13. TRASTUZUMAB [Suspect]
     Active Substance: TRASTUZUMAB
     Dosage: 140 MILLIGRAM, Q3W
     Route: 042
  14. TRASTUZUMAB [Suspect]
     Active Substance: TRASTUZUMAB
     Dosage: 350 MILLIGRAM (350 MILLIGRAM, UNK, LOADING DOSE)/01-JUN-2015
     Route: 042
  15. TRASTUZUMAB [Suspect]
     Active Substance: TRASTUZUMAB
     Dosage: 300 MG, Q3W/29-JUN-2015
     Route: 042
     Dates: end: 20151102
  16. TRASTUZUMAB [Suspect]
     Active Substance: TRASTUZUMAB
     Dosage: 350 MILLIGRAM, LOADING DOSE;/01-JUN-2015
     Route: 042
     Dates: end: 20150601
  17. TRASTUZUMAB [Suspect]
     Active Substance: TRASTUZUMAB
     Dosage: 172 MG, Q3W/01-DEC-2018
     Route: 042
     Dates: end: 20181221
  18. TRASTUZUMAB [Suspect]
     Active Substance: TRASTUZUMAB
     Dosage: 1 MILLIGRAM, Q3W (DOSE REDUCED)
     Route: 042
  19. TRASTUZUMAB [Suspect]
     Active Substance: TRASTUZUMAB
     Dosage: 1 DOSAGE FORM, Q3W,DOSE REDUCED
     Route: 042
  20. TRASTUZUMAB [Suspect]
     Active Substance: TRASTUZUMAB
     Dosage: 172 MG, Q3W/01-DEC-2015
     Route: 042
     Dates: end: 20151221
  21. TRASTUZUMAB [Suspect]
     Active Substance: TRASTUZUMAB
     Dosage: 840 MILLIGRAM, Q3W
     Route: 042
  22. TRASTUZUMAB [Suspect]
     Active Substance: TRASTUZUMAB
     Dosage: 840 MILLIGRAM, UNK, LOADING DOSE;
     Route: 042
  23. TRASTUZUMAB [Suspect]
     Active Substance: TRASTUZUMAB
     Dosage: 420 MG, Q3W, TARGETED THERAPY
     Route: 042
  24. TRASTUZUMAB [Suspect]
     Active Substance: TRASTUZUMAB
     Dosage: TARGETED THERAPY (DOSE FORM: 230, CUMULATIVE DOSE: 800.0MG)/22-JUN-2015
     Route: 042
     Dates: end: 20151102
  25. TRASTUZUMAB [Suspect]
     Active Substance: TRASTUZUMAB
     Dosage: DOSE REDUCED/01-JUN-2015
     Route: 042
     Dates: end: 20150601
  26. TRASTUZUMAB [Suspect]
     Active Substance: TRASTUZUMAB
     Dosage: 300 MG, Q3W/02-NOV-2015
     Route: 042
     Dates: end: 20151102
  27. TRASTUZUMAB [Suspect]
     Active Substance: TRASTUZUMAB
     Dosage: 172 MILLIGRAM, Q3W
     Route: 041
  28. TRASTUZUMAB [Suspect]
     Active Substance: TRASTUZUMAB
     Dosage: UNK UNK, Q3W, DOSE REDUCED
     Route: 042
  29. TRASTUZUMAB [Suspect]
     Active Substance: TRASTUZUMAB
     Dosage: 140 MILLIGRAM, Q3W/01-DEC-2015
     Route: 042
     Dates: end: 20160215
  30. TRASTUZUMAB [Suspect]
     Active Substance: TRASTUZUMAB
     Dosage: 300 MILLIGRAM, Q3W (DOSE MODIFIED)/29-JUN-2015
     Route: 042
     Dates: end: 20151102
  31. TRASTUZUMAB [Suspect]
     Active Substance: TRASTUZUMAB
     Dosage: 350 MILLIGRAM (350 MILLIGRAM, UNK, LOADING DOSE)/01-JUN-2015
     Route: 042
  32. TRASTUZUMAB [Suspect]
     Active Substance: TRASTUZUMAB
     Dosage: UNK UNK, Q3W
     Route: 042
  33. TRASTUZUMAB [Suspect]
     Active Substance: TRASTUZUMAB
     Dosage: 140 MILLIGRAM, Q3W, 140 MILLIGRAM, Q3WK/15-FEB-2016
     Route: 042
     Dates: end: 20160215
  34. TRASTUZUMAB [Suspect]
     Active Substance: TRASTUZUMAB
     Dosage: 172 MILLIGRAM, Q3W/01-DEC-2015
     Route: 042
     Dates: end: 20151221
  35. TRASTUZUMAB [Suspect]
     Active Substance: TRASTUZUMAB
     Dosage: 350 MILLIGRAM, LOADING DOSE//01-JUN-2015
     Route: 042
     Dates: end: 20150601
  36. TRASTUZUMAB [Suspect]
     Active Substance: TRASTUZUMAB
     Dosage: 172 MILLIGRAM, Q3W/01-DEC-2015
     Route: 042
     Dates: end: 20151221
  37. TRASTUZUMAB [Suspect]
     Active Substance: TRASTUZUMAB
     Dosage: 140 MILLIGRAM, Q3W/15-FEB-2016
     Route: 042
     Dates: end: 20160215
  38. TRASTUZUMAB [Suspect]
     Active Substance: TRASTUZUMAB
     Dosage: UNK,DOSE REDUCED, 230
     Route: 042
  39. CAPECITABINE [Suspect]
     Active Substance: CAPECITABINE
     Indication: HER2 positive breast cancer
     Dosage: 1500 MILLIGRAM, QD/10-FEB-2017
     Route: 048
     Dates: end: 20170728
  40. CAPECITABINE [Suspect]
     Active Substance: CAPECITABINE
     Indication: Breast cancer metastatic
     Dosage: 3000 MILLIGRAM, QD/10-FEB-2017
     Route: 048
     Dates: end: 20170728
  41. CAPECITABINE [Suspect]
     Active Substance: CAPECITABINE
     Dosage: 1500 MILLIGRAM, BID
     Route: 048
  42. CAPECITABINE [Suspect]
     Active Substance: CAPECITABINE
     Dosage: 3000 MILLIGRAM, BID/10-FEB-2017
     Route: 048
     Dates: end: 20170728
  43. CAPECITABINE [Suspect]
     Active Substance: CAPECITABINE
     Dosage: 3000 MILLIGRAM, QD/10-FEB-2017
     Route: 048
  44. CAPECITABINE [Suspect]
     Active Substance: CAPECITABINE
     Dosage: 3000 MILLIGRAM, QD
     Route: 048
  45. CAPECITABINE [Suspect]
     Active Substance: CAPECITABINE
     Dosage: 3000 MILLIGRAM, BID/10-FEB-2017
     Route: 048
     Dates: end: 20170728
  46. CAPECITABINE [Suspect]
     Active Substance: CAPECITABINE
     Dosage: 1500 MILLIGRAM, BID/10-FEB-2017
     Route: 048
     Dates: end: 20170728
  47. CAPECITABINE [Suspect]
     Active Substance: CAPECITABINE
     Dosage: (DOSE FORM: 82) (ADDITIONAL INFO ON DRUG: INTRAVENTRICULAR TABLET)
     Route: 048
  48. CAPECITABINE [Suspect]
     Active Substance: CAPECITABINE
     Dosage: 3000 MILLIGRAM, QD, (DOSE FORM: 82)
     Route: 048
  49. CAPECITABINE [Suspect]
     Active Substance: CAPECITABINE
     Dosage: 1500 MG, QD, (PHARMACEUTICAL DOSE FORM: 245)/10-FEB-2017
     Route: 048
     Dates: end: 20170728
  50. CAPECITABINE [Suspect]
     Active Substance: CAPECITABINE
     Dosage: 3000 MILLIGRAM, QD
     Route: 048
  51. CAPECITABINE [Suspect]
     Active Substance: CAPECITABINE
     Dosage: 1500 MILLIGRAM
     Route: 048
  52. CAPECITABINE [Suspect]
     Active Substance: CAPECITABINE
     Dosage: 3000 MILLIGRAM, QD/10-FEB-2017
     Route: 048
  53. CAPECITABINE [Suspect]
     Active Substance: CAPECITABINE
     Dosage: UNK
  54. CAPECITABINE [Suspect]
     Active Substance: CAPECITABINE
     Dosage: 1500 MILLIGRAM, QD, (DOSE FORM: 82)/10-FEB-2017
     Route: 048
     Dates: end: 20170728
  55. CAPECITABINE [Suspect]
     Active Substance: CAPECITABINE
     Dosage: (ADDITIONAL INFO ON DRUG: INTRAVENTRICULAR TABLET)/10-FEB-2017
     Route: 048
     Dates: end: 20170728
  56. CAPECITABINE [Suspect]
     Active Substance: CAPECITABINE
     Dosage: 3000 MILLIGRAM, QD, (EVERY 0.5 DAY)/10-FEB-2017
     Route: 048
     Dates: end: 20170728
  57. CAPECITABINE [Suspect]
     Active Substance: CAPECITABINE
     Dosage: 3000 MILLIGRAM, QD/10-FEB-2017
     Route: 048
     Dates: end: 20170728
  58. CAPECITABINE [Suspect]
     Active Substance: CAPECITABINE
     Dosage: (DOSE FORM: 82) (ADDITIONAL INFO ON DRUG: INTRAVENTRICULAR TABLET)
  59. CAPECITABINE [Suspect]
     Active Substance: CAPECITABINE
     Dosage: 1500 MILLIGRAM, QD/10-FEB-2017
     Route: 048
     Dates: end: 20170728
  60. CAPECITABINE [Suspect]
     Active Substance: CAPECITABINE
     Dosage: 1500 MILLIGRAM, 0.5 DAY (3000MG ONCE DAILY)/10-FEB-2017
     Route: 048
     Dates: end: 20170728
  61. CAPECITABINE [Suspect]
     Active Substance: CAPECITABINE
     Dosage: 3000 MILLIGRAM, (DOSE FORM: 245)10-FEB-2017
     Route: 048
  62. CAPECITABINE [Suspect]
     Active Substance: CAPECITABINE
     Dosage: 1500 MILLIGRAM, BID, (FREQUENCY: 0.5 DAY)
     Route: 048
  63. CAPECITABINE [Suspect]
     Active Substance: CAPECITABINE
     Dosage: 3000 MILLIGRAM, QD, 1500 MILLIGRAM, BID
     Route: 048
  64. CAPECITABINE [Suspect]
     Active Substance: CAPECITABINE
     Dosage: 3000 MILLIGRAM, QD, 1500 MILLIGRAM, BID
     Route: 048
  65. CAPECITABINE [Suspect]
     Active Substance: CAPECITABINE
     Dosage: (DOSE FORM: 82) (INTRAVENTRICULAR TABLET)/10-FEB-2017
     Route: 048
     Dates: end: 20170728
  66. CAPECITABINE [Suspect]
     Active Substance: CAPECITABINE
     Dosage: 3000 MILLIGRAM, BID/10-FEB-2017
     Route: 048
     Dates: end: 20170728
  67. DOCETAXEL [Suspect]
     Active Substance: DOCETAXEL
     Indication: Breast cancer metastatic
     Dosage: 108 MILLIGRAM, Q3W
     Route: 042
     Dates: end: 20150602
  68. DOCETAXEL [Suspect]
     Active Substance: DOCETAXEL
     Indication: HER2 positive breast cancer
     Dosage: 86 MILLIGRAM, Q3W, DOSE DISCONTINUED, 3WEEK/29-JUN-2015
     Route: 042
     Dates: end: 20150720
  69. DOCETAXEL [Suspect]
     Active Substance: DOCETAXEL
     Dosage: 86 MILLIGRAM, Q3WK, DOSE DISCONTINUED/29-JUN-2015
     Route: 042
     Dates: end: 20150720
  70. DOCETAXEL [Suspect]
     Active Substance: DOCETAXEL
     Dosage: 80 MILLIGRAM/29-JUN-2015
  71. DOCETAXEL [Suspect]
     Active Substance: DOCETAXEL
     Dosage: 80 MILLIGRAM, Q3W (DOSE DISCONTINUED)/29-JUN-2015
     Route: 042
     Dates: end: 20150720
  72. DOCETAXEL [Suspect]
     Active Substance: DOCETAXEL
     Dosage: 108 MILLIGRAM, Q3W,DOSE MODIFIED/02-JUN-2015
     Route: 042
     Dates: end: 20150602
  73. DOCETAXEL [Suspect]
     Active Substance: DOCETAXEL
     Dosage: 108 MG, Q3W
     Route: 042
  74. DOCETAXEL [Suspect]
     Active Substance: DOCETAXEL
     Dosage: 86 MILLIGRAM, Q3WK, DOSE DISCONTINUED (DOSE FORM:16)/29-JUN-2015
     Route: 042
     Dates: end: 20150720
  75. DOCETAXEL [Suspect]
     Active Substance: DOCETAXEL
     Dosage: 80 MILLIGRAM/29-JUN-2015
  76. DOCETAXEL [Suspect]
     Active Substance: DOCETAXEL
     Dosage: 80 MILLIGRAM, Q3W (DOSE DISCONTINUED)/29-JUN-2015
     Route: 042
     Dates: end: 20150720
  77. DOCETAXEL [Suspect]
     Active Substance: DOCETAXEL
     Dosage: 86 MILLIGRAM, Q3W, DOSE DISCONTINUED, THREE WEEK/29-JUN-2015
     Route: 042
     Dates: end: 20150720
  78. DOCETAXEL [Suspect]
     Active Substance: DOCETAXEL
     Dosage: 108 MILLIGRAM, Q3W,DOSE MODIFIED/02-JUN-2015
     Route: 042
     Dates: end: 20150602
  79. DOCETAXEL [Suspect]
     Active Substance: DOCETAXEL
     Dosage: UNK/29-JUN-2015
     Route: 042
  80. VINORELBINE [Suspect]
     Active Substance: VINORELBINE TARTRATE
     Indication: HER2 positive breast cancer
     Dosage: 60 MILLIGRAM/03-MAY-2018
     Route: 048
     Dates: end: 20180608
  81. VINORELBINE [Suspect]
     Active Substance: VINORELBINE TARTRATE
     Indication: Breast cancer metastatic
     Dosage: 60 MILLIGRAM/08-JUN-2018
     Route: 048
     Dates: end: 20180810
  82. VINORELBINE [Suspect]
     Active Substance: VINORELBINE TARTRATE
     Dosage: 60 MILLIGRAM
     Route: 048
  83. VINORELBINE [Suspect]
     Active Substance: VINORELBINE TARTRATE
     Dosage: 60 MILLIGRAM/30-MAY-2018
     Route: 048
     Dates: end: 20180608
  84. PERTUZUMAB [Suspect]
     Active Substance: PERTUZUMAB
     Indication: HER2 positive breast cancer
     Dosage: 420 MILLIGRAM, Q3W
     Route: 042
     Dates: end: 20151102
  85. PERTUZUMAB [Suspect]
     Active Substance: PERTUZUMAB
     Indication: Breast cancer metastatic
     Dosage: 840 MILLIGRAM, Q3W (1 DF)
     Route: 042
  86. PERTUZUMAB [Suspect]
     Active Substance: PERTUZUMAB
     Dosage: 1 DOSAGE FORM
     Route: 042
  87. PERTUZUMAB [Suspect]
     Active Substance: PERTUZUMAB
     Dosage: 1 DOSAGE FORM, Q3W, UNK, Q3WK, DOSE REDUCED
     Route: 042
  88. PERTUZUMAB [Suspect]
     Active Substance: PERTUZUMAB
     Dosage: 840 MILLIGRAM,LOADING CASE
     Route: 042
  89. PERTUZUMAB [Suspect]
     Active Substance: PERTUZUMAB
     Dosage: 420 MILLIGRAM, Q3W,TARGETED THERAPY
     Route: 042
  90. PERTUZUMAB [Suspect]
     Active Substance: PERTUZUMAB
     Dosage: 420 MILLIGRAM, Q3W,TARGETED THERAPY
     Route: 042
     Dates: end: 20151102
  91. PERTUZUMAB [Suspect]
     Active Substance: PERTUZUMAB
     Dosage: 420 MILLIGRAM, Q3W,TARGETED THERAPY
     Route: 042
  92. PERTUZUMAB [Suspect]
     Active Substance: PERTUZUMAB
     Dosage: 420 MILLIGRAM, Q3WK, TARGETED THERAPY (DOSE FROM: 230)/22-JUN-2015
     Route: 041
     Dates: end: 20151102
  93. PERTUZUMAB [Suspect]
     Active Substance: PERTUZUMAB
     Dosage: 420 MILLIGRAM, Q3W,TARGETED THERAPY/22-JUN-2015
     Route: 042
     Dates: end: 20150622
  94. PERTUZUMAB [Suspect]
     Active Substance: PERTUZUMAB
     Dosage: 1 DOSAGE FORM, Q3W, UNK, Q3WK, DOSE REDUCED
     Route: 042
  95. PERTUZUMAB [Suspect]
     Active Substance: PERTUZUMAB
     Dosage: 420 MG, Q3W (DOSE FORM: 230)
     Route: 042
  96. PERTUZUMAB [Suspect]
     Active Substance: PERTUZUMAB
     Dosage: 1 DOSAGE FORM, Q3W, UNK, Q3WK, DOSE REDUCED
     Route: 042
     Dates: end: 20151102
  97. PERTUZUMAB [Suspect]
     Active Substance: PERTUZUMAB
     Dosage: 420 MILLIGRAM, Q3W,TARGETED THERAPY/22-JUN-2015
     Route: 042
     Dates: end: 20151102
  98. ADO-TRASTUZUMAB EMTANSINE [Suspect]
     Active Substance: ADO-TRASTUZUMAB EMTANSINE
     Indication: HER2 positive breast cancer
     Dosage: 140 MILLIGRAM, Q3W
     Route: 042
     Dates: end: 20160215
  99. ADO-TRASTUZUMAB EMTANSINE [Suspect]
     Active Substance: ADO-TRASTUZUMAB EMTANSINE
     Indication: Breast cancer metastatic
     Dosage: 172 MILLIGRAM, Q3W/01-DEC-2015
     Route: 042
     Dates: end: 20151221
  100. ADO-TRASTUZUMAB EMTANSINE [Suspect]
     Active Substance: ADO-TRASTUZUMAB EMTANSINE
     Dosage: 140 MILLIGRAM, Q3W/15-FEB-2016
     Route: 042
     Dates: end: 20160215
  101. ADO-TRASTUZUMAB EMTANSINE [Suspect]
     Active Substance: ADO-TRASTUZUMAB EMTANSINE
     Dosage: 140 MILLIGRAM, Q3W
     Route: 042
  102. ADO-TRASTUZUMAB EMTANSINE [Suspect]
     Active Substance: ADO-TRASTUZUMAB EMTANSINE
     Dosage: 172 MILLIGRAM, Q3W/01-DEC-2015
     Route: 042
  103. ADO-TRASTUZUMAB EMTANSINE [Suspect]
     Active Substance: ADO-TRASTUZUMAB EMTANSINE
     Dosage: INFUSION, SOLUTION
     Route: 042
  104. ADO-TRASTUZUMAB EMTANSINE [Suspect]
     Active Substance: ADO-TRASTUZUMAB EMTANSINE
     Dosage: 140 MILLIGRAM, Q3W/01-DEC-2015
     Route: 042
     Dates: end: 20160215
  105. ADO-TRASTUZUMAB EMTANSINE [Suspect]
     Active Substance: ADO-TRASTUZUMAB EMTANSINE
     Dosage: 1 DOSAGE FORM, Q3W
  106. ADO-TRASTUZUMAB EMTANSINE [Suspect]
     Active Substance: ADO-TRASTUZUMAB EMTANSINE
     Dosage: 172 MILLIGRAM, Q3W
     Route: 042
  107. ADO-TRASTUZUMAB EMTANSINE [Suspect]
     Active Substance: ADO-TRASTUZUMAB EMTANSINE
     Dosage: 140 MILLIGRAM, Q3W/15-FEB-2016
     Route: 042
     Dates: end: 20160215
  108. ADO-TRASTUZUMAB EMTANSINE [Suspect]
     Active Substance: ADO-TRASTUZUMAB EMTANSINE
     Dosage: 140 MILLIGRAM, Q3W/01-DEC-2015
     Route: 042
     Dates: end: 20160215
  109. ADO-TRASTUZUMAB EMTANSINE [Suspect]
     Active Substance: ADO-TRASTUZUMAB EMTANSINE
     Dosage: 172 MILLIGRAM, Q3W/01-DEC-2015
     Route: 042
     Dates: end: 20151221
  110. ADO-TRASTUZUMAB EMTANSINE [Suspect]
     Active Substance: ADO-TRASTUZUMAB EMTANSINE
     Dosage: 172 MILLIGRAM, Q3W/01-DEC-2015
     Route: 042
  111. ADO-TRASTUZUMAB EMTANSINE [Suspect]
     Active Substance: ADO-TRASTUZUMAB EMTANSINE
     Dosage: 172 MILLIGRAM, Q3W/01-DEC-2015
     Route: 042
     Dates: end: 20160215
  112. ERIBULIN [Suspect]
     Active Substance: ERIBULIN
     Indication: HER2 positive breast cancer
     Dosage: 1.5 MILLIGRAM, Q3W/11-APR-2016
     Route: 042
     Dates: end: 20160624
  113. ERIBULIN [Suspect]
     Active Substance: ERIBULIN
     Indication: Breast cancer metastatic
     Dosage: 1.5 MILLIGRAM, Q3W
     Route: 042
  114. ERIBULIN [Suspect]
     Active Substance: ERIBULIN
     Dosage: 1.5 MILLIGRAM
     Route: 042
  115. ERIBULIN [Suspect]
     Active Substance: ERIBULIN
     Dosage: 1.5 MILLIGRAM, Q3W/11-APR-2016
     Route: 042
  116. ERIBULIN [Suspect]
     Active Substance: ERIBULIN
     Dosage: 1.5 MILLIGRAM, Q3W
     Route: 042
  117. ERIBULIN [Suspect]
     Active Substance: ERIBULIN
     Dosage: 1.5 MILLIGRAM, Q3W
     Route: 042
  118. ERIBULIN [Suspect]
     Active Substance: ERIBULIN
     Dosage: 1.5 MILLIGRAM, Q3W
     Route: 042
  119. ERIBULIN [Suspect]
     Active Substance: ERIBULIN
     Dosage: 1.5 MILLIGRAM, Q3W
     Route: 042
  120. ERIBULIN [Suspect]
     Active Substance: ERIBULIN
     Dosage: 1.5 MILLIGRAM, Q3W/11-APR-2016
     Route: 042
  121. ERIBULIN [Suspect]
     Active Substance: ERIBULIN
     Dosage: 1.5 MILLIGRAM, Q3W/11-APR-2016
  122. ERIBULIN [Suspect]
     Active Substance: ERIBULIN
     Dosage: 1.5 MILLIGRAM, Q3W/11-APR-2016
     Route: 042
  123. ERIBULIN [Suspect]
     Active Substance: ERIBULIN
     Dosage: 1.5 MILLIGRAM, Q3W/11-APR-2016
     Route: 042
  124. ERIBULIN [Suspect]
     Active Substance: ERIBULIN
     Dosage: 1.5 MILLIGRAM, Q2W
     Route: 042
  125. ERIBULIN [Suspect]
     Active Substance: ERIBULIN
     Dosage: 1.5 MILLIGRAM, Q3W/24-JUN-2016
     Route: 042
     Dates: end: 20160624
  126. ERIBULIN [Suspect]
     Active Substance: ERIBULIN
     Dosage: 1.5 MILLIGRAM, Q3W
     Route: 042
  127. ERIBULIN [Suspect]
     Active Substance: ERIBULIN
     Dosage: 1.5 MILLIGRAM, Q2W
     Route: 042
  128. ERIBULIN [Suspect]
     Active Substance: ERIBULIN
     Dosage: 86 MILLIGRAM, Q3WK, DOSE DISCONTINUED/29-JUN-2015
     Route: 042
     Dates: end: 20150720
  129. ERIBULIN [Suspect]
     Active Substance: ERIBULIN
     Dosage: 108 MILLIGRAM, Q3W,DOSE MODIFIED (DOSE FORM: 16)/02-JUN-2015
     Route: 042
     Dates: end: 20150602
  130. ERIBULIN [Suspect]
     Active Substance: ERIBULIN
     Dosage: 80 MG, EVERY 3 WEEKS (DOSE DISCONTINUED)/29-JUN-2015
     Route: 042
     Dates: end: 20150720
  131. ERIBULIN [Suspect]
     Active Substance: ERIBULIN
     Dosage: 1.5 MILLIGRAM, Q3W/11-APR-2016
     Route: 042
     Dates: end: 20160411
  132. ERIBULIN [Suspect]
     Active Substance: ERIBULIN
     Dosage: UNK
  133. NERATINIB [Suspect]
     Active Substance: NERATINIB
     Indication: HER2 positive breast cancer
     Dosage: 40 MILLIGRAM, QD/01-SEP-2017
     Route: 048
     Dates: end: 20180314
  134. NERATINIB [Suspect]
     Active Substance: NERATINIB
     Indication: Breast cancer metastatic
     Dosage: 40 MILLIGRAM, QD
     Route: 048
  135. NERATINIB [Suspect]
     Active Substance: NERATINIB
     Dosage: 40 MILLIGRAM
     Route: 048
  136. NERATINIB [Suspect]
     Active Substance: NERATINIB
     Dosage: 240 MILLIGRAM, QD/23-FEB-2018
     Dates: end: 20180420
  137. NERATINIB [Suspect]
     Active Substance: NERATINIB
     Dosage: 240 MILLIGRAM, QD
     Route: 048
  138. NERATINIB [Suspect]
     Active Substance: NERATINIB
     Dosage: 40 MILLIGRAM, QD/01-SEP-2017
     Route: 048
  139. NERATINIB [Suspect]
     Active Substance: NERATINIB
     Dosage: 240 MILLIGRAM, QD/01-SEP-2017
     Route: 048
     Dates: end: 20180216
  140. NERATINIB [Suspect]
     Active Substance: NERATINIB
     Dosage: 240 MILLIGRAM, QD/23-FEB-2018
     Dates: end: 20180402
  141. NERATINIB [Suspect]
     Active Substance: NERATINIB
     Dosage: 240 MILLIGRAM, QD/01-SEP-2017
     Route: 048
     Dates: end: 20180314
  142. NERATINIB [Suspect]
     Active Substance: NERATINIB
     Dosage: 240 MILLIGRAM, QD/01-SEP-2017
     Route: 048
     Dates: end: 20180314
  143. NERATINIB [Suspect]
     Active Substance: NERATINIB
     Dosage: (DOSE FORM: 82) (ADDITIONAL INFO ON DRUG: INTRAVENTRICULAR TABLET)
     Route: 048
  144. NERATINIB [Suspect]
     Active Substance: NERATINIB
     Dosage: UNK
  145. NERATINIB [Suspect]
     Active Substance: NERATINIB
     Dosage: 240 MILLIGRAM/01-SEP-2017
     Route: 048
     Dates: end: 20180216
  146. NERATINIB [Suspect]
     Active Substance: NERATINIB
     Dosage: 240 MILLIGRAM, QD/23-FEB-2018
     Dates: end: 20180402
  147. NERATINIB [Suspect]
     Active Substance: NERATINIB
     Indication: Breast cancer metastatic
     Dosage: 40 MILLIGRAM, QD
     Route: 048
  148. NERATINIB [Suspect]
     Active Substance: NERATINIB
     Indication: HER2 positive breast cancer
     Dosage: 240 MILLIGRAM, QD
     Route: 048
  149. NERATINIB [Suspect]
     Active Substance: NERATINIB
     Dosage: 40 MILLIGRAM, QD/01-SEP-2017
     Route: 048
     Dates: end: 20180314
  150. NERATINIB [Suspect]
     Active Substance: NERATINIB
     Dosage: 40 MILLIGRAM
     Route: 048
  151. NERATINIB [Suspect]
     Active Substance: NERATINIB
     Dosage: 240 MILLIGRAM, QD/01-SEP-2017
     Route: 048
     Dates: end: 20180216
  152. NERATINIB [Suspect]
     Active Substance: NERATINIB
     Dosage: 40 MILLIGRAM, QD/01-SEP-2017
     Route: 048
  153. NERATINIB [Suspect]
     Active Substance: NERATINIB
     Dosage: 240 MILLIGRAM, QD/23-FEB-2018
     Dates: end: 20180420
  154. MUPIROCIN [Concomitant]
     Active Substance: MUPIROCIN
     Indication: Prophylaxis
     Dosage: 2 PERCENT, QD/20-JUN-2016
     Route: 061
     Dates: end: 20160624
  155. MUPIROCIN [Concomitant]
     Active Substance: MUPIROCIN
     Dosage: 6 PERCENT, QD/20-JUN-2016
     Route: 061
     Dates: end: 20160624
  156. MUPIROCIN [Concomitant]
     Active Substance: MUPIROCIN
     Dosage: 2 PERCENT, QD/20-JUN-2016
     Route: 061
     Dates: end: 20160624
  157. MUPIROCIN [Concomitant]
     Active Substance: MUPIROCIN
     Dosage: 6 PERCENT, QD/20-JUN-2016
     Route: 061
     Dates: end: 20160624
  158. MUPIROCIN [Concomitant]
     Active Substance: MUPIROCIN
     Dosage: UNK UNK, TID/20-JUN-2016
     Route: 061
     Dates: end: 20160624
  159. MEROPENEM [Concomitant]
     Active Substance: MEROPENEM
     Indication: Lower respiratory tract infection
     Dosage: 15-FEB-2017
     Route: 042
     Dates: end: 20170221
  160. POTASSIUM BICARBONATE\POTASSIUM CHLORIDE [Concomitant]
     Active Substance: POTASSIUM BICARBONATE\POTASSIUM CHLORIDE
     Indication: Nutritional supplementation
     Dosage: 2 DOSAGE FORM, QD,2 TABLETS EVERY DAY/28-AUG-2015
     Route: 048
     Dates: end: 20150830
  161. POTASSIUM BICARBONATE\POTASSIUM CHLORIDE [Concomitant]
     Active Substance: POTASSIUM BICARBONATE\POTASSIUM CHLORIDE
     Dosage: 1 DOSAGE FORM, QD (2 TABLETS EVERY DAY)/28-AUG-2015
     Route: 048
     Dates: end: 20150830
  162. DOMPERIDONE [Concomitant]
     Active Substance: DOMPERIDONE
     Indication: Product used for unknown indication
     Dosage: 10 MILLIGRAM, QD/06-APR-2016
     Route: 048
     Dates: end: 20160421
  163. DOMPERIDONE [Concomitant]
     Active Substance: DOMPERIDONE
     Dosage: 30 MILLIGRAM, QD/06-APR-2016
     Route: 048
     Dates: end: 20160421
  164. FILGRASTIM [Concomitant]
     Active Substance: FILGRASTIM
     Dosage: 300 MICROGRAM, QD/25-JUL-2015
     Route: 058
     Dates: end: 20150730
  165. FILGRASTIM [Concomitant]
     Active Substance: FILGRASTIM
     Dosage: (FOR 3 DAYS STARTING ON DAYS 3 AND 11)/21-APR-2016
     Route: 058
     Dates: end: 20160712
  166. CIPROFLOXACIN [Concomitant]
     Active Substance: CIPROFLOXACIN
     Dosage: 500 MILLIGRAM, QD/18-DEC-2015
     Route: 048
     Dates: end: 20151225
  167. CIPROFLOXACIN [Concomitant]
     Active Substance: CIPROFLOXACIN
     Dosage: 1000 MILLIGRAM, QD/18-DEC-2015
     Route: 048
     Dates: end: 20151225
  168. LOPERAMIDE [Concomitant]
     Active Substance: LOPERAMIDE
     Indication: Diarrhoea
     Dosage: 2 MILLIGRAM, PRN/01-SEP-2017
     Route: 048
     Dates: end: 20171124
  169. LOPERAMIDE [Concomitant]
     Active Substance: LOPERAMIDE
     Dosage: UNK , PRN/01-SEP-2017
     Route: 048
     Dates: end: 20171124
  170. GENTAMICIN [Concomitant]
     Active Substance: GENTAMICIN
     Indication: Lower respiratory tract infection
     Dosage: 13-FEB-2017
     Route: 042
     Dates: end: 201702
  171. GENTAMICIN [Concomitant]
     Active Substance: GENTAMICIN
     Dosage: 13-FEB-2017
     Route: 042
     Dates: end: 201702
  172. FOLIC ACID [Concomitant]
     Active Substance: FOLIC ACID
     Indication: Blood folate decreased
     Dosage: 5 MILLIGRAM, QD/28-AUG-2015
     Route: 048
     Dates: end: 201708
  173. FOLIC ACID [Concomitant]
     Active Substance: FOLIC ACID
     Dosage: 5 MILLIGRAM, QD/28-AUG-2015
     Route: 048
  174. AMOXICILLIN\CLAVULANATE POTASSIUM [Concomitant]
     Active Substance: AMOXICILLIN\CLAVULANATE POTASSIUM
     Indication: Lower respiratory tract infection
     Dosage: 625 MILLIGRAM, QD/22-FEB-2017
     Route: 048
     Dates: end: 20170228
  175. AMOXICILLIN\CLAVULANATE POTASSIUM [Concomitant]
     Active Substance: AMOXICILLIN\CLAVULANATE POTASSIUM
     Dosage: 1875 MILLIGRAM, QD/22-FEB-2017
     Route: 048
     Dates: end: 20170228
  176. AMLODIPINE [Concomitant]
     Active Substance: AMLODIPINE BESYLATE
     Dosage: 10 MILLIGRAM
     Route: 048
  177. PIPERACILLIN SODIUM\TAZOBACTAM SODIUM [Concomitant]
     Active Substance: PIPERACILLIN SODIUM\TAZOBACTAM SODIUM
     Indication: Lower respiratory tract infection
     Dosage: 13-FEB-2017
     Route: 042
     Dates: end: 20170215
  178. CLAVULANATE POTASSIUM [Concomitant]
     Active Substance: CLAVULANATE POTASSIUM
     Indication: Lower respiratory tract infection
     Dosage: 1875 MILLIGRAM, QD/22-FEB-2017
     Route: 048
     Dates: end: 20170228
  179. CLAVULANATE POTASSIUM [Concomitant]
     Active Substance: CLAVULANATE POTASSIUM
     Dosage: 625 MILLIGRAM, QD/22-FEB-2017
     Route: 048
     Dates: end: 20170228
  180. PIPERACILLIN AND TAZOBACTAM [Concomitant]
     Active Substance: PIPERACILLIN SODIUM\TAZOBACTAM SODIUM
     Indication: Lower respiratory tract infection
     Dosage: 13-FEB-2017
     Dates: end: 20170215
  181. POTASSIUM [Concomitant]
     Active Substance: POTASSIUM
     Indication: Nutritional supplementation
     Dosage: 1 DOSAGE FORM, QD/2 TABLETS EVERY DAY/28-AUG-2015
     Route: 048
     Dates: end: 20150830
  182. AMOXICILLIN\CLAVULANATE POTASSIUM [Concomitant]
     Active Substance: AMOXICILLIN\CLAVULANATE POTASSIUM
     Indication: Lower respiratory tract infection
     Dosage: 1875 MILLIGRAM, QD/22-FEB-2017
     Route: 048
     Dates: end: 20170228
  183. AMOXICILLIN\CLAVULANATE POTASSIUM [Concomitant]
     Active Substance: AMOXICILLIN\CLAVULANATE POTASSIUM
     Dosage: 625 MILLIGRAM, QD/22-FEB-2017
     Route: 048
     Dates: end: 20170228
  184. POTASSIUM BICARBONATE\POTASSIUM CHLORIDE [Concomitant]
     Active Substance: POTASSIUM BICARBONATE\POTASSIUM CHLORIDE
     Indication: Nutritional supplementation
     Dosage: 2 DOSAGE FORM, QD,2 TABLETS EVERY DAY/28-AUG-2015
     Route: 048
     Dates: end: 20150830
  185. POTASSIUM BICARBONATE\POTASSIUM CHLORIDE [Concomitant]
     Active Substance: POTASSIUM BICARBONATE\POTASSIUM CHLORIDE
     Dosage: 1 DOSAGE FORM, QD (2 TABLETS EVERY DAY)/28-AUG-2015
     Route: 048
     Dates: end: 20150830

REACTIONS (30)
  - Disease progression [Fatal]
  - Neuropathy peripheral [Fatal]
  - Intentional product misuse [Fatal]
  - Pyrexia [Fatal]
  - Dysphonia [Fatal]
  - Product use issue [Fatal]
  - Palpitations [Fatal]
  - Diarrhoea [Fatal]
  - Fatigue [Fatal]
  - Neutropenia [Fatal]
  - Pancytopenia [Fatal]
  - Hyperchlorhydria [Fatal]
  - Thrombocytopenia [Fatal]
  - Throat irritation [Fatal]
  - Lethargy [Fatal]
  - Odynophagia [Fatal]
  - Folate deficiency [Fatal]
  - Weight decreased [Fatal]
  - Dyspepsia [Fatal]
  - Rash pruritic [Fatal]
  - Mucosal inflammation [Fatal]
  - Cough [Fatal]
  - Hypoaesthesia [Fatal]
  - Decreased appetite [Fatal]
  - Colitis [Fatal]
  - Nausea [Fatal]
  - Tremor [Fatal]
  - Off label use [Fatal]
  - Alopecia [Fatal]
  - Condition aggravated [Fatal]

NARRATIVE: CASE EVENT DATE: 20150601
